FAERS Safety Report 19906845 (Version 1)
Quarter: 2021Q3

REPORT INFORMATION
  Report Type: Spontaneous
  Country: FR (occurrence: FR)
  Receive Date: 20210930
  Receipt Date: 20210930
  Transmission Date: 20211014
  Serious: Yes (Hospitalization)
  Sender: FDA-Public Use
  Company Number: FR-PFIZER INC-202101238387

PATIENT
  Age: 84 Year
  Sex: Male

DRUGS (2)
  1. OFLOXACINE [Interacting]
     Active Substance: OFLOXACIN
     Indication: OSTEITIS
     Dosage: 200 MG, 3X/DAY
     Route: 048
     Dates: start: 20210716, end: 20210721
  2. CLINDAMYCIN HCL [Suspect]
     Active Substance: CLINDAMYCIN HYDROCHLORIDE
     Indication: OSTEITIS
     Dosage: 600 MG, 3X/DAY
     Route: 048
     Dates: start: 20210716, end: 20210721

REACTIONS (2)
  - Drug interaction [Recovered/Resolved]
  - Vascular purpura [Recovered/Resolved]

NARRATIVE: CASE EVENT DATE: 20210721
